FAERS Safety Report 6572618-1 (Version None)
Quarter: 2010Q1

REPORT INFORMATION
  Report Type: 
  Country: None (occurrence: None)
  Receive Date: 20100205
  Receipt Date: 20100127
  Transmission Date: 20100710
  Serious: Yes (Hospitalization)
  Sender: FDA-Public Use
  Company Number: CA-AMGEN-US268308

PATIENT
  Sex: Male

DRUGS (5)
  1. PANITUMUMAB [Suspect]
     Indication: SQUAMOUS CELL CARCINOMA
     Route: 042
     Dates: start: 20080121
  2. CISPLATIN [Suspect]
  3. 5-FU [Suspect]
  4. ALBUTEROL [Concomitant]
     Route: 055
  5. IPRATROPIUM [Concomitant]
     Route: 055

REACTIONS (2)
  - PNEUMONIA [None]
  - PULMONARY EMBOLISM [None]
